FAERS Safety Report 8235926-4 (Version None)
Quarter: 2012Q1

REPORT INFORMATION
  Report Type: 
  Country: None (occurrence: None)
  Receive Date: 20120326
  Receipt Date: 20120322
  Transmission Date: 20120608
  Serious: Yes (Other)
  Sender: FDA-Public Use
  Company Number: US-MERCK-1203USA02849

PATIENT
  Sex: Female

DRUGS (4)
  1. FOSAMAX [Suspect]
     Indication: OSTEOPOROSIS
     Route: 048
  2. BONIVA [Suspect]
     Indication: OSTEOPOROSIS
     Route: 065
  3. FOSAMAX [Suspect]
     Route: 048
  4. ACTONEL [Suspect]
     Indication: OSTEOPOROSIS
     Route: 065

REACTIONS (2)
  - FEMUR FRACTURE [None]
  - LOW TURNOVER OSTEOPATHY [None]
